FAERS Safety Report 5960556-4 (Version None)
Quarter: 2008Q4

REPORT INFORMATION
  Report Type: 
  Country: None (occurrence: None)
  Receive Date: 20081120
  Receipt Date: 20081114
  Transmission Date: 20090506
  Serious: Yes (Hospitalization)
  Sender: FDA-Public Use
  Company Number: ES-PFIZER INC-2008093188

PATIENT
  Age: 27 Year
  Sex: Female

DRUGS (5)
  1. SALAZOPYRINA [Suspect]
     Indication: CUTANEOUS LUPUS ERYTHEMATOSUS
     Dosage: DAILY DOSE:3GRAM
     Route: 048
     Dates: start: 20070802, end: 20070823
  2. CLOBETASOL PROPIONATE [Concomitant]
     Indication: CUTANEOUS LUPUS ERYTHEMATOSUS
     Route: 061
     Dates: start: 20070517
  3. DACORTIN [Concomitant]
     Indication: CUTANEOUS LUPUS ERYTHEMATOSUS
     Route: 048
     Dates: start: 20070517, end: 20070801
  4. HYDROXYCHLOROQUINE SULFATE [Concomitant]
     Indication: CUTANEOUS LUPUS ERYTHEMATOSUS
     Route: 048
     Dates: start: 20070225
  5. ELOCON [Concomitant]
     Indication: CUTANEOUS LUPUS ERYTHEMATOSUS
     Route: 061
     Dates: start: 20070517

REACTIONS (5)
  - HAEMOLYSIS [None]
  - LEUKAEMOID REACTION [None]
  - NAUSEA [None]
  - PYREXIA [None]
  - RASH [None]
